FAERS Safety Report 4936419-X (Version None)
Quarter: 2006Q1

REPORT INFORMATION
  Report Type: 
  Country: None (occurrence: None)
  Receive Date: 20060127
  Receipt Date: 20051201
  Transmission Date: 20060701
  Serious: Yes (Other)
  Sender: FDA-Public Use
  Company Number: 2005164575

PATIENT
  Age: 81 Year
  Sex: Female
  Weight: 49.4421 kg

DRUGS (7)
  1. LYRICA [Suspect]
     Indication: ARTHRALGIA
     Dosage: 150 MG (75 MG, 2 IN 1 D), ORAL
     Route: 048
     Dates: start: 20051201
  2. PERCOCET [Concomitant]
  3. LOTREL [Concomitant]
  4. TOPROL-XL [Concomitant]
  5. MULTIVITAMIN [Concomitant]
  6. ACETYLSALICYLIC ACID SRT [Concomitant]
  7. LORAZEPAM [Concomitant]

REACTIONS (3)
  - FEELING ABNORMAL [None]
  - NERVOUSNESS [None]
  - PALPITATIONS [None]
